FAERS Safety Report 20099139 (Version 2)
Quarter: 2021Q4

REPORT INFORMATION
  Report Type: Spontaneous
  Country: US (occurrence: US)
  Receive Date: 20211122
  Receipt Date: 20211202
  Transmission Date: 20220303
  Serious: Yes (Hospitalization)
  Sender: FDA-Public Use
  Company Number: US-Vifor (International) Inc.-VIT-2021-09091

PATIENT
  Age: 88 Year
  Sex: Male

DRUGS (5)
  1. VELTASSA [Suspect]
     Active Substance: PATIROMER
     Indication: Hyperkalaemia
     Route: 048
     Dates: start: 20210605, end: 2021
  2. FERROUS SULFATE [Concomitant]
     Active Substance: FERROUS SULFATE
  3. FLUTICASONE [Concomitant]
     Active Substance: FLUTICASONE
  4. PRAVASTATIN [Concomitant]
     Active Substance: PRAVASTATIN
  5. METOPROL SUC [Concomitant]

REACTIONS (1)
  - Hospitalisation [Not Recovered/Not Resolved]

NARRATIVE: CASE EVENT DATE: 20210101
